FAERS Safety Report 17964772 (Version 4)
Quarter: 2020Q3

REPORT INFORMATION
  Report Type: Report from Study
  Country: US (occurrence: US)
  Receive Date: 20200630
  Receipt Date: 20200903
  Transmission Date: 20201103
  Serious: No
  Sender: FDA-Public Use
  Company Number: NVSC2020US183679

PATIENT
  Age: 40 Year
  Sex: Male

DRUGS (2)
  1. COSENTYX [Suspect]
     Active Substance: SECUKINUMAB
     Indication: PSORIATIC ARTHROPATHY
  2. COSENTYX [Suspect]
     Active Substance: SECUKINUMAB
     Indication: PSORIASIS
     Dosage: 300 MG, QW
     Route: 058
     Dates: start: 20200603

REACTIONS (2)
  - Arthralgia [Not Recovered/Not Resolved]
  - Product dose omission issue [Unknown]

NARRATIVE: CASE EVENT DATE: 20200603
